FAERS Safety Report 21426224 (Version 1)
Quarter: 2022Q4

REPORT INFORMATION
  Report Type: Spontaneous
  Country: US (occurrence: US)
  Receive Date: 20221008
  Receipt Date: 20221008
  Transmission Date: 20230112
  Serious: No
  Sender: FDA-Public Use
  Company Number: US-MUNDIPHARMA RESEARCH LIMITED-CAN-2021-0012245

PATIENT
  Age: 62 Year
  Sex: Female

DRUGS (5)
  1. METHYLPHENIDATE HYDROCHLORIDE [Suspect]
     Active Substance: METHYLPHENIDATE HYDROCHLORIDE
     Indication: Disturbance in attention
     Dosage: UNK
     Route: 065
  2. VALPROIC ACID [Concomitant]
     Active Substance: VALPROIC ACID
     Indication: Headache
  3. ACETAMINOPHEN [Concomitant]
     Active Substance: ACETAMINOPHEN
     Indication: Headache
  4. CODEINE [Concomitant]
     Active Substance: CODEINE
     Indication: Headache
  5. AMANTADINE [Concomitant]
     Active Substance: AMANTADINE
     Indication: Headache

REACTIONS (1)
  - Off label use [Unknown]
